FAERS Safety Report 5240660-9 (Version None)
Quarter: 2007Q1

REPORT INFORMATION
  Report Type: 
  Country: None (occurrence: None)
  Receive Date: 20070219
  Receipt Date: 20070212
  Transmission Date: 20070707
  Serious: Yes (Hospitalization)
  Sender: FDA-Public Use
  Company Number: 2007CG00251

PATIENT
  Age: 54 Year
  Sex: Male

DRUGS (5)
  1. ZESTRIL [Suspect]
     Indication: HYPERTENSION
     Route: 048
  2. BEFIZAL [Suspect]
     Indication: HYPERCHOLESTEROLAEMIA
     Route: 048
  3. XANAX [Concomitant]
     Route: 048
  4. HEXAQUINE [Concomitant]
     Route: 048
  5. ART 50 [Concomitant]
     Route: 048

REACTIONS (1)
  - PANCREATITIS NECROTISING [None]
